FAERS Safety Report 16707430 (Version 1)
Quarter: 2019Q3

REPORT INFORMATION
  Report Type: Spontaneous
  Country: GB (occurrence: GB)
  Receive Date: 20190815
  Receipt Date: 20190815
  Transmission Date: 20191004
  Serious: Yes (Other)
  Sender: FDA-Public Use
  Company Number: GB-PFIZER INC-2019346524

PATIENT
  Age: 24 Year
  Sex: Female
  Weight: 44.9 kg

DRUGS (1)
  1. DOXYCYCLINE MONOHYDRATE [Suspect]
     Active Substance: DOXYCYCLINE
     Indication: UREAPLASMA INFECTION
     Dosage: 100 MG, UNK
     Route: 048
     Dates: start: 20190526, end: 20190602

REACTIONS (3)
  - Malaise [Recovered/Resolved]
  - Parosmia [Unknown]
  - Vomiting [Recovered/Resolved]

NARRATIVE: CASE EVENT DATE: 20190528
